FAERS Safety Report 7222223-9 (Version None)
Quarter: 2011Q1

REPORT INFORMATION
  Report Type: 
  Country: None (occurrence: None)
  Receive Date: 20110112
  Receipt Date: 20101202
  Transmission Date: 20110831
  Serious: No
  Sender: FDA-Public Use
  Company Number: US-BAYER-2010-003991

PATIENT
  Sex: Female
  Weight: 98.413 kg

DRUGS (5)
  1. ALEVE (CAPLET) [Suspect]
     Indication: MUSCULOSKELETAL PAIN
     Dosage: 440 MG, BID
     Route: 048
     Dates: start: 20101202
  2. SYNTHROID [Concomitant]
  3. XANAX [Concomitant]
  4. PROTONIX [Concomitant]
  5. PERCOCET [Concomitant]

REACTIONS (1)
  - NO ADVERSE EVENT [None]
